FAERS Safety Report 21590561 (Version 1)
Quarter: 2022Q4

REPORT INFORMATION
  Report Type: Spontaneous
  Country: CH (occurrence: CH)
  Receive Date: 20221114
  Receipt Date: 20221114
  Transmission Date: 20230113
  Serious: Yes (Hospitalization)
  Sender: FDA-Public Use
  Company Number: None

PATIENT
  Age: 35 Year
  Sex: Male

DRUGS (16)
  1. METHOTREXATE [Suspect]
     Active Substance: METHOTREXATE
     Indication: Chondrosarcoma
     Dosage: 23.760 MG, IN TOTAL
     Route: 042
     Dates: start: 20211115, end: 20211115
  2. CISPLATIN [Interacting]
     Active Substance: CISPLATIN
     Indication: Chondrosarcoma
     Dosage: 80 MG, TOTAL
     Route: 042
     Dates: start: 20211025, end: 20211025
  3. CISPLATIN [Interacting]
     Active Substance: CISPLATIN
     Dosage: 80 MG, TOTAL
     Route: 042
     Dates: start: 20211026, end: 20211026
  4. CISPLATIN [Interacting]
     Active Substance: CISPLATIN
     Dosage: 80 MG, TOTAL
     Route: 042
     Dates: start: 20211027, end: 20211027
  5. PANTOPRAZOLE SODIUM [Interacting]
     Active Substance: PANTOPRAZOLE SODIUM
     Indication: Product used for unknown indication
     Dosage: 40 MG, Q12H
     Route: 048
  6. METAMIZOLE [Interacting]
     Active Substance: METAMIZOLE
     Indication: Analgesic therapy
     Dosage: 1000 MG, Q6H
     Route: 042
     Dates: start: 20211201, end: 20211209
  7. DOXORUBICIN HYDROCHLORIDE [Concomitant]
     Active Substance: DOXORUBICIN HYDROCHLORIDE
     Indication: Chondrosarcoma metastatic
     Dosage: 75 MG, IN TOTAL
     Route: 042
     Dates: start: 20211025, end: 20211025
  8. DOXORUBICIN HYDROCHLORIDE [Concomitant]
     Active Substance: DOXORUBICIN HYDROCHLORIDE
     Dosage: 75 MG, IN TOTAL
     Route: 042
     Dates: start: 20211026, end: 20211026
  9. NALOXONE HYDROCHLORIDE\OXYCODONE HYDROCHLORIDE [Concomitant]
     Active Substance: NALOXONE HYDROCHLORIDE\OXYCODONE HYDROCHLORIDE
     Indication: Product used for unknown indication
     Dosage: 1 DOSAGE FORM, Q12H
     Route: 048
     Dates: start: 20211108
  10. CALCIUM\CHOLECALCIFEROL [Concomitant]
     Active Substance: CALCIUM\CHOLECALCIFEROL
     Indication: Product used for unknown indication
     Dosage: 1 DOSAGE FORM, QD
     Route: 048
     Dates: start: 20211108
  11. PASPERTIN [Concomitant]
     Indication: Product used for unknown indication
     Dosage: 1 DOSAGE FORM, PRN
     Route: 048
     Dates: start: 20211108
  12. ONDANSETRON [Concomitant]
     Active Substance: ONDANSETRON
     Indication: Product used for unknown indication
     Dosage: 1 DOSAGE FORM, PRN
     Route: 048
     Dates: start: 20211108
  13. MOVICOL [Concomitant]
     Active Substance: POLYETHYLENE GLYCOL 3350\POTASSIUM CHLORIDE\SODIUM BICARBONATE\SODIUM CHLORIDE
     Indication: Product used for unknown indication
     Dosage: 1 DOSAGE FORM, PRN
     Route: 048
     Dates: start: 20211108
  14. IMODIUM [Concomitant]
     Active Substance: LOPERAMIDE HYDROCHLORIDE
     Indication: Product used for unknown indication
     Dosage: 2 MG, PRN
     Route: 048
     Dates: start: 20211108
  15. OXYCODONE HYDROCHLORIDE [Concomitant]
     Active Substance: OXYCODONE HYDROCHLORIDE
     Indication: Product used for unknown indication
     Dosage: 1 DOSAGE FORM, PRN
     Route: 048
     Dates: start: 20211108
  16. BUTYLSCOPOLAMINE BROMIDE [Concomitant]
     Active Substance: BUTYLSCOPOLAMINE BROMIDE
     Indication: Product used for unknown indication
     Dosage: 10 MG, PRN
     Route: 048
     Dates: start: 20211108

REACTIONS (8)
  - Poisoning [Recovering/Resolving]
  - Gastritis [Recovering/Resolving]
  - Colitis [Recovering/Resolving]
  - Acute kidney injury [Recovered/Resolved]
  - Liver disorder [Recovering/Resolving]
  - Pancytopenia [Recovered/Resolved]
  - Stomatitis [Recovering/Resolving]
  - Drug interaction [Recovering/Resolving]

NARRATIVE: CASE EVENT DATE: 20211116
